FAERS Safety Report 6812798-3 (Version None)
Quarter: 2010Q3

REPORT INFORMATION
  Report Type: 
  Country: None (occurrence: None)
  Receive Date: 20100701
  Receipt Date: 20100628
  Transmission Date: 20110219
  Serious: Yes (Hospitalization)
  Sender: FDA-Public Use
  Company Number: B0662690A

PATIENT
  Sex: Male

DRUGS (6)
  1. AUGMENTIN '125' [Suspect]
     Indication: DENTAL DISORDER PROPHYLAXIS
     Route: 048
     Dates: start: 20091107, end: 20091107
  2. STAGID [Concomitant]
     Dosage: 700MG UNKNOWN
     Route: 048
  3. GLICLAZIDE [Concomitant]
     Route: 048
  4. COZAAR [Concomitant]
     Route: 048
  5. KARDEGIC [Concomitant]
     Route: 048
  6. TUSSIPAX [Concomitant]
     Indication: COUGH
     Route: 048

REACTIONS (7)
  - ANAPHYLACTIC REACTION [None]
  - DYSPNOEA [None]
  - FEELING HOT [None]
  - GENERALISED ERYTHEMA [None]
  - HYPOTENSION [None]
  - MALAISE [None]
  - PRURITUS [None]
